FAERS Safety Report 6785845-5 (Version None)
Quarter: 2010Q2

REPORT INFORMATION
  Report Type: 
  Country: None (occurrence: None)
  Receive Date: 20100623
  Receipt Date: 20100613
  Transmission Date: 20101027
  Serious: Yes (Other)
  Sender: FDA-Public Use
  Company Number: RU-PFIZER INC-2010075156

PATIENT
  Sex: Female

DRUGS (1)
  1. LIPRIMAR [Suspect]
     Dosage: 20 MG, 1X/DAY
     Route: 048
     Dates: start: 20070101

REACTIONS (1)
  - THROMBOCYTOPENIA [None]
